FAERS Safety Report 13229116 (Version 3)
Quarter: 2017Q1

REPORT INFORMATION
  Report Type: Spontaneous
  Country: NZ (occurrence: NZ)
  Receive Date: 20170214
  Receipt Date: 20170313
  Transmission Date: 20170428
  Serious: Yes (Hospitalization)
  Sender: FDA-Public Use
  Company Number: NZ-BAXTER-2017BAX005446

PATIENT
  Sex: Male

DRUGS (21)
  1. WATER FOR INJECTION, 100%, SOLUTION FOR INFUSION (BOTTLE) [Suspect]
     Active Substance: WATER
     Indication: MEDICATION DILUTION
     Dosage: 1ST INFUSION PUMP
     Route: 042
     Dates: start: 20170124
  2. WATER FOR INJECTION, 100%, SOLUTION FOR INFUSION (BOTTLE) [Suspect]
     Active Substance: WATER
     Dosage: 4TH INFUSION PUMP
     Route: 042
     Dates: start: 20170127
  3. SODIUM CHLORIDE, 0.9%, SOLUTION FOR INFUSION [Suspect]
     Active Substance: SODIUM CHLORIDE
     Indication: MEDICATION DILUTION
     Dosage: 1ST INFUSION PUMP
     Route: 042
     Dates: start: 20170124
  4. VANCOMYCIN [Suspect]
     Active Substance: VANCOMYCIN
     Dosage: 6TH INFUSION PUMP
     Route: 042
     Dates: start: 20170129
  5. VANCOMYCIN [Suspect]
     Active Substance: VANCOMYCIN
     Dosage: 7TH INFUSION PUMP
     Route: 042
     Dates: start: 20170130
  6. WATER FOR INJECTION, 100%, SOLUTION FOR INFUSION (BOTTLE) [Suspect]
     Active Substance: WATER
     Dosage: 2ND INFUSION PUMP; FOUND EMPTY AT 06.00
     Route: 042
     Dates: start: 20170125
  7. VANCOMYCIN [Suspect]
     Active Substance: VANCOMYCIN
     Dosage: 5TH INFUSION PUMP
     Route: 042
     Dates: start: 20170128, end: 20170128
  8. WATER FOR INJECTION, 100%, SOLUTION FOR INFUSION (BOTTLE) [Suspect]
     Active Substance: WATER
     Dosage: 3RD INFUSION PUMP; FOUND EMPTY AT 06.00
     Route: 042
     Dates: start: 20170126
  9. SODIUM CHLORIDE, 0.9%, SOLUTION FOR INFUSION [Suspect]
     Active Substance: SODIUM CHLORIDE
     Dosage: 2ND INFUSION PUMP, FOUND EMPTY AT 06.00
     Route: 042
     Dates: start: 20170125
  10. SODIUM CHLORIDE, 0.9%, SOLUTION FOR INFUSION [Suspect]
     Active Substance: SODIUM CHLORIDE
     Dosage: 3RD INFUSION PUMP; FOUND EMPTY AT 06.00
     Route: 042
     Dates: start: 20170126
  11. SODIUM CHLORIDE, 0.9%, SOLUTION FOR INFUSION [Suspect]
     Active Substance: SODIUM CHLORIDE
     Dosage: 5TH INFUSION PUMP
     Route: 042
     Dates: start: 20170128, end: 20170128
  12. VANCOMYCIN [Suspect]
     Active Substance: VANCOMYCIN
     Indication: PRODUCT USED FOR UNKNOWN INDICATION
     Dosage: 1ST INFUSION PUMP
     Route: 042
     Dates: start: 20170124
  13. SODIUM CHLORIDE, 0.9%, SOLUTION FOR INFUSION [Suspect]
     Active Substance: SODIUM CHLORIDE
     Dosage: 4TH INFUSION PUMP
     Route: 042
     Dates: start: 20170127
  14. WATER FOR INJECTION, 100%, SOLUTION FOR INFUSION (BOTTLE) [Suspect]
     Active Substance: WATER
     Dosage: 7TH INFUSION PUMP
     Route: 042
     Dates: start: 20170130
  15. VANCOMYCIN [Suspect]
     Active Substance: VANCOMYCIN
     Dosage: 2ND INFUSION PUMP; FOUND EMPTY AT 06.00
     Route: 042
     Dates: start: 20170125
  16. VANCOMYCIN [Suspect]
     Active Substance: VANCOMYCIN
     Dosage: 4TH INFUSION PUMP
     Route: 042
     Dates: start: 20170127
  17. SODIUM CHLORIDE, 0.9%, SOLUTION FOR INFUSION [Suspect]
     Active Substance: SODIUM CHLORIDE
     Dosage: 6TH INFUSION PUMP
     Route: 042
     Dates: start: 20170129
  18. SODIUM CHLORIDE, 0.9%, SOLUTION FOR INFUSION [Suspect]
     Active Substance: SODIUM CHLORIDE
     Dosage: 7TH INFUSION PUMP
     Route: 042
     Dates: start: 20170130
  19. WATER FOR INJECTION, 100%, SOLUTION FOR INFUSION (BOTTLE) [Suspect]
     Active Substance: WATER
     Dosage: 5TH INFUSION PUMP
     Route: 042
     Dates: start: 20170128, end: 20170128
  20. WATER FOR INJECTION, 100%, SOLUTION FOR INFUSION (BOTTLE) [Suspect]
     Active Substance: WATER
     Dosage: 6TH INFUSION PUMP
     Route: 042
     Dates: start: 20170129
  21. VANCOMYCIN [Suspect]
     Active Substance: VANCOMYCIN
     Dosage: 3RD INFUSION PUMP; FOUND EMPTY AT 06.00
     Route: 042
     Dates: start: 20170126

REACTIONS (4)
  - Pyrexia [Unknown]
  - Device infusion issue [Unknown]
  - Drug level increased [Unknown]
  - Incorrect drug administration rate [Unknown]

NARRATIVE: CASE EVENT DATE: 20170125
